FAERS Safety Report 4609023-0 (Version None)
Quarter: 2005Q1

REPORT INFORMATION
  Report Type: 
  Country: None (occurrence: None)
  Receive Date: 20050311
  Receipt Date: 20050226
  Transmission Date: 20050727
  Serious: Yes (Other)
  Sender: FDA-Public Use
  Company Number: 2005038004

PATIENT
  Age: 60 Year
  Sex: Female
  Weight: 88.4514 kg

DRUGS (3)
  1. CELEBREX [Suspect]
     Indication: ARTHRITIS
     Dates: start: 20040901
  2. MONTELUKAST SODIUM (MONTELUKAST SODIUM) [Concomitant]
  3. FLUOXETINE HCL [Concomitant]

REACTIONS (3)
  - ENCEPHALITIS [None]
  - MEMORY IMPAIRMENT [None]
  - SYNCOPE [None]
